FAERS Safety Report 11862573 (Version 1)
Quarter: 2015Q4

REPORT INFORMATION
  Report Type: Spontaneous
  Country: US (occurrence: None)
  Receive Date: 20151222
  Receipt Date: 20151222
  Transmission Date: 20160305
  Serious: Yes (Death)
  Sender: FDA-Public Use
  Company Number: None

PATIENT
  Age: 45 Year
  Sex: Female
  Weight: 72.58 kg

DRUGS (1)
  1. CHANTIX [Suspect]
     Active Substance: VARENICLINE TARTRATE
     Indication: SMOKING CESSATION THERAPY
     Route: 048
     Dates: start: 20151127, end: 20151205

REACTIONS (7)
  - Abdominal discomfort [None]
  - Pain in extremity [None]
  - Arrhythmia [None]
  - Cardiac arrest [None]
  - Coronary artery thrombosis [None]
  - Panic attack [None]
  - Palpitations [None]

NARRATIVE: CASE EVENT DATE: 20151205
